FAERS Safety Report 18839995 (Version 1)
Quarter: 2021Q1

REPORT INFORMATION
  Report Type: Report from Study
  Country: US (occurrence: US)
  Receive Date: 20210204
  Receipt Date: 20210204
  Transmission Date: 20210419
  Serious: No
  Sender: FDA-Public Use
  Company Number: US-EXELIXIS-CABO-20031951

PATIENT
  Sex: Male

DRUGS (2)
  1. CABOMETYX [Suspect]
     Active Substance: CABOZANTINIB S-MALATE
     Dosage: 60 MG, QD
     Route: 048
  2. CABOMETYX [Suspect]
     Active Substance: CABOZANTINIB S-MALATE
     Indication: RENAL CELL CARCINOMA
     Dosage: 60 MG, QD
     Route: 048

REACTIONS (13)
  - Tenderness [Unknown]
  - Weight decreased [Unknown]
  - Stomatitis [Unknown]
  - Blood pressure increased [Unknown]
  - Skin ulcer [Unknown]
  - Diarrhoea [Not Recovered/Not Resolved]
  - Thyroid disorder [Unknown]
  - Hair colour changes [Unknown]
  - Taste disorder [Recovering/Resolving]
  - Nausea [Unknown]
  - Decreased appetite [Recovering/Resolving]
  - Pruritus [Recovered/Resolved]
  - Rash [Recovered/Resolved]
